FAERS Safety Report 12874451 (Version 1)
Quarter: 2016Q4

REPORT INFORMATION
  Report Type: Spontaneous
  Country: US (occurrence: US)
  Receive Date: 20161021
  Receipt Date: 20161021
  Transmission Date: 20170207
  Serious: No
  Sender: FDA-Public Use
  Company Number: US-ACTELION-A-NJ2016-144073

PATIENT
  Age: 78 Year
  Sex: Male

DRUGS (9)
  1. ULORIC [Concomitant]
     Active Substance: FEBUXOSTAT
  2. PERCOCET [Concomitant]
     Active Substance: ACETAMINOPHEN\OXYCODONE HYDROCHLORIDE
  3. CLOBETASOL [Concomitant]
     Active Substance: CLOBETASOL
  4. METAXALONE. [Concomitant]
     Active Substance: METAXALONE
  5. VALCHLOR [Suspect]
     Active Substance: MECHLORETHAMINE
     Indication: MYCOSIS FUNGOIDES
     Dosage: UNK
     Route: 061
     Dates: start: 20160904
  6. VALSARTAN + HIDROCLOROTIAZIDA [Concomitant]
     Active Substance: HYDROCHLOROTHIAZIDE\VALSARTAN
  7. COUMADIN [Concomitant]
     Active Substance: WARFARIN SODIUM
  8. DIFLORASONE [Concomitant]
     Active Substance: DIFLORASONE DIACETATE
  9. TARGRETIN [Concomitant]
     Active Substance: BEXAROTENE

REACTIONS (1)
  - Therapy non-responder [Unknown]
